FAERS Safety Report 6252055-X (Version None)
Quarter: 2009Q2

REPORT INFORMATION
  Report Type: 
  Country: None (occurrence: None)
  Receive Date: 20090630
  Receipt Date: 20061106
  Transmission Date: 20091009
  Serious: Yes (Hospitalization)
  Sender: FDA-Public Use
  Company Number: US-ROCHE-638731

PATIENT
  Sex: Female

DRUGS (4)
  1. ENFUVIRTIDE [Suspect]
     Route: 065
     Dates: start: 20040604, end: 20080708
  2. TRUVADA [Concomitant]
     Dates: start: 20040604, end: 20080708
  3. PREZISTA [Concomitant]
     Dates: start: 20061010, end: 20080814
  4. DIFLUCAN [Concomitant]
     Dates: start: 20061010, end: 20080814

REACTIONS (1)
  - HIV INFECTION [None]
